APPROVED DRUG PRODUCT: CEFTRIAXONE
Active Ingredient: CEFTRIAXONE SODIUM
Strength: EQ 1GM BASE/VIAL
Dosage Form/Route: INJECTABLE;INJECTION
Application: A065180 | Product #001 | TE Code: AP
Applicant: APOTEX INC
Approved: May 12, 2006 | RLD: No | RS: No | Type: RX